FAERS Safety Report 15206395 (Version 1)
Quarter: 2018Q3

REPORT INFORMATION
  Report Type: Spontaneous
  Country: GB (occurrence: GB)
  Receive Date: 20180727
  Receipt Date: 20180727
  Transmission Date: 20181010
  Serious: Yes (Other)
  Sender: FDA-Public Use
  Company Number: GB-TEVA-2018-GB-931403

PATIENT
  Age: 71 Year
  Sex: Female
  Weight: 108 kg

DRUGS (4)
  1. AMLODIPINE [Concomitant]
     Active Substance: AMLODIPINE BESYLATE
     Indication: HYPERTENSION
     Dosage: 1 DOSAGE FORMS DAILY; EVERY MORNING TO LOWER BLOOD PRESSURE
     Dates: start: 20180105
  2. ATORVASTATIN [Concomitant]
     Active Substance: ATORVASTATIN
     Dosage: 1 DOSAGE FORMS DAILY; EVENING TO LOWER CHOLESTEROL
     Dates: start: 20171002
  3. LOSARTAN. [Concomitant]
     Active Substance: LOSARTAN
     Indication: HYPERTENSION
     Dosage: 1 DOSAGE FORMS DAILY; EVERY MORNING TO REDUCE BLOOD PRESSURE
     Dates: start: 20170831
  4. INDAPAMIDE. [Suspect]
     Active Substance: INDAPAMIDE
     Indication: HYPERTENSION
     Route: 048
     Dates: start: 20180601, end: 20180613

REACTIONS (5)
  - Arthralgia [Unknown]
  - Rash [Recovered/Resolved]
  - Pruritus [Unknown]
  - Lethargy [Unknown]
  - Nausea [Unknown]

NARRATIVE: CASE EVENT DATE: 20180613
